FAERS Safety Report 19997921 (Version 1)
Quarter: 2021Q4

REPORT INFORMATION
  Report Type: Spontaneous
  Country: US (occurrence: US)
  Receive Date: 20211026
  Receipt Date: 20211026
  Transmission Date: 20220303
  Serious: Yes (Hospitalization, Other)
  Sender: FDA-Public Use
  Company Number: US-SA-SAC20211025000156

PATIENT
  Age: 70 Year
  Sex: Male

DRUGS (1)
  1. JEVTANA [Suspect]
     Active Substance: CABAZITAXEL
     Indication: Hormone-refractory prostate cancer
     Dosage: 60 MG
     Dates: start: 20211006

REACTIONS (3)
  - Colitis [Recovering/Resolving]
  - Illness [Recovering/Resolving]
  - Haemorrhage [Recovering/Resolving]
